FAERS Safety Report 23979293 (Version 1)
Quarter: 2024Q2

REPORT INFORMATION
  Report Type: Spontaneous
  Country: JP (occurrence: JP)
  Receive Date: 20240615
  Receipt Date: 20240615
  Transmission Date: 20240716
  Serious: Yes (Death, Life-Threatening, Hospitalization)
  Sender: FDA-Public Use
  Company Number: JP-MLMSERVICE-20240528-PI079734-00059-1

PATIENT
  Age: 61 Year
  Sex: Male

DRUGS (5)
  1. METHOTREXATE [Suspect]
     Active Substance: METHOTREXATE
     Indication: Immunosuppressant drug therapy
     Dates: start: 2019
  2. AZATHIOPRINE [Suspect]
     Active Substance: AZATHIOPRINE
     Indication: Immunosuppressant drug therapy
     Dates: start: 2019
  3. PREDNISOLONE [Suspect]
     Active Substance: PREDNISOLONE
     Indication: Polychondritis
     Dates: start: 202102
  4. RITUXIMAB [Suspect]
     Active Substance: RITUXIMAB
     Indication: Immunosuppressant drug therapy
     Dates: start: 202102
  5. RITUXIMAB [Suspect]
     Active Substance: RITUXIMAB
     Indication: Immunosuppressant drug therapy
     Dates: start: 2019

REACTIONS (7)
  - COVID-19 [Fatal]
  - Pulmonary ossification [Fatal]
  - Multiple organ dysfunction syndrome [Fatal]
  - Diffuse alveolar damage [Fatal]
  - Cytomegalovirus infection [Fatal]
  - Pulmonary fibrosis [Fatal]
  - Respiratory failure [Fatal]
